APPROVED DRUG PRODUCT: TORNALATE
Active Ingredient: BITOLTEROL MESYLATE
Strength: 0.2%
Dosage Form/Route: SOLUTION;INHALATION
Application: N019548 | Product #001
Applicant: SANOFI AVENTIS US LLC
Approved: Feb 19, 1992 | RLD: No | RS: No | Type: DISCN